FAERS Safety Report 12075430 (Version 2)
Quarter: 2017Q2

REPORT INFORMATION
  Report Type: Report from Study
  Country: FR (occurrence: FR)
  Receive Date: 20160213
  Receipt Date: 20170411
  Transmission Date: 20170829
  Serious: Yes (Other)
  Sender: FDA-Public Use
  Company Number: US-SUN PHARMACEUTICAL INDUSTRIES LTD-2016R1-111496

PATIENT
  Age: 4 Month

DRUGS (1)
  1. PROPRANOLOL [Suspect]
     Active Substance: PROPRANOLOL HYDROCHLORIDE
     Indication: INFANTILE HAEMANGIOMA
     Dosage: 2MG/KG/DAY
     Route: 048

REACTIONS (2)
  - Bradycardia [Recovering/Resolving]
  - Off label use [Unknown]
